FAERS Safety Report 9283251 (Version 1)
Quarter: 2013Q2

REPORT INFORMATION
  Report Type: Spontaneous
  Country: US (occurrence: US)
  Receive Date: 20130510
  Receipt Date: 20130510
  Transmission Date: 20140414
  Serious: No
  Sender: FDA-Public Use
  Company Number: US-GLAXOSMITHKLINE-A0992633A

PATIENT
  Age: 52 Year
  Sex: Female
  Weight: 75 kg

DRUGS (9)
  1. TYKERB [Suspect]
     Indication: PRODUCT USED FOR UNKNOWN INDICATION
     Dosage: 1000MG PER DAY
     Route: 048
  2. XANAX [Concomitant]
  3. WELLBUTRIN [Concomitant]
  4. LEXAPRO [Concomitant]
  5. BUTALBITAL [Concomitant]
  6. MAGNESIUM [Concomitant]
  7. VITAMIN D [Concomitant]
  8. ASA [Concomitant]
  9. HERCEPTIN [Concomitant]

REACTIONS (5)
  - Cough [Unknown]
  - Influenza like illness [Unknown]
  - Oropharyngeal pain [Unknown]
  - Pyrexia [Unknown]
  - Laryngitis [Unknown]
